FAERS Safety Report 9597381 (Version 1)
Quarter: 2013Q4

REPORT INFORMATION
  Report Type: Spontaneous
  Country: US (occurrence: US)
  Receive Date: 20131004
  Receipt Date: 20131004
  Transmission Date: 20140711
  Serious: Yes (Hospitalization)
  Sender: FDA-Public Use
  Company Number: US-ABBVIE-13P-163-1152156-00

PATIENT
  Sex: Male
  Weight: 78.54 kg

DRUGS (3)
  1. HUMIRA [Suspect]
     Indication: CROHN^S DISEASE
     Dates: start: 2009, end: 201202
  2. VITAMIN D [Concomitant]
     Indication: VITAMIN D DEFICIENCY
  3. CALCIUM [Concomitant]
     Indication: CALCIUM DEFICIENCY

REACTIONS (10)
  - Renal failure [Recovered/Resolved]
  - Nephrolithiasis [Recovered/Resolved]
  - Thrombosis [Recovered/Resolved]
  - Cerebrovascular accident [Recovered/Resolved]
  - Vertigo [Unknown]
  - Herpes zoster [Recovered/Resolved with Sequelae]
  - Dizziness [Unknown]
  - Dyspnoea [Unknown]
  - Vitamin B12 deficiency [Unknown]
  - Calcium deficiency [Unknown]
